FAERS Safety Report 22065763 (Version 1)
Quarter: 2023Q1

REPORT INFORMATION
  Report Type: Spontaneous
  Country: US (occurrence: US)
  Receive Date: 20230306
  Receipt Date: 20230306
  Transmission Date: 20230417
  Serious: No
  Sender: FDA-Public Use
  Company Number: US-PFIZER INC-202300088076

PATIENT
  Age: 26 Year
  Sex: Female
  Weight: 108.86 kg

DRUGS (2)
  1. NURTEC ODT [Suspect]
     Active Substance: RIMEGEPANT SULFATE
     Indication: Migraine
     Dosage: 75 MG, AS NEEDED
     Route: 048
  2. NURTEC ODT [Suspect]
     Active Substance: RIMEGEPANT SULFATE
     Indication: Headache

REACTIONS (2)
  - Headache [Not Recovered/Not Resolved]
  - Drug ineffective [Unknown]
